FAERS Safety Report 6654152-3 (Version None)
Quarter: 2010Q1

REPORT INFORMATION
  Report Type: 
  Country: None (occurrence: None)
  Receive Date: 20100326
  Receipt Date: 20100317
  Transmission Date: 20100710
  Serious: Yes (Other)
  Sender: FDA-Public Use
  Company Number: BR-PFIZER INC-2010034696

PATIENT
  Age: 31 Year
  Sex: Female
  Weight: 78 kg

DRUGS (5)
  1. DEPO-PROVERA [Suspect]
     Indication: CONTRACEPTION
     Dosage: 150 MG, UNK
     Route: 030
     Dates: start: 20091215
  2. DEPO-PROVERA [Suspect]
     Indication: MENSTRUAL DISCOMFORT
  3. RIVOTRIL [Concomitant]
     Dosage: UNK
  4. SOY ISOFLAVONES [Concomitant]
     Dosage: UNK
  5. CLOMIPRAMINE [Concomitant]
     Dosage: UNK

REACTIONS (4)
  - ASTHENIA [None]
  - DEPRESSED MOOD [None]
  - MENORRHAGIA [None]
  - MENSTRUAL DISORDER [None]
